FAERS Safety Report 9200915 (Version 1)
Quarter: 2013Q2

REPORT INFORMATION
  Report Type: Spontaneous
  Country: US (occurrence: US)
  Receive Date: 20130401
  Receipt Date: 20130401
  Transmission Date: 20140414
  Serious: Yes (Other)
  Sender: FDA-Public Use
  Company Number: US-JNJFOC-20130314199

PATIENT
  Age: 61 Year
  Sex: Female

DRUGS (1)
  1. DURAGESIC [Suspect]
     Indication: PAIN
     Route: 062

REACTIONS (6)
  - Weight decreased [Not Recovered/Not Resolved]
  - Application site reaction [Not Recovered/Not Resolved]
  - Product quality issue [Unknown]
  - Product quality issue [Not Recovered/Not Resolved]
  - Poor quality drug administered [Not Recovered/Not Resolved]
  - Wrong technique in drug usage process [Unknown]
